FAERS Safety Report 22531496 (Version 1)
Quarter: 2023Q2

REPORT INFORMATION
  Report Type: Spontaneous
  Country: SE (occurrence: SE)
  Receive Date: 20230607
  Receipt Date: 20230607
  Transmission Date: 20230721
  Serious: Yes (Life-Threatening)
  Sender: FDA-Public Use
  Company Number: None

PATIENT
  Age: 79 Year
  Sex: Male
  Weight: 92 kg

DRUGS (3)
  1. TAFINLAR [Suspect]
     Active Substance: DABRAFENIB MESYLATE
     Indication: Metastatic malignant melanoma
     Dosage: UNK, (HALVDOS)
     Route: 048
     Dates: start: 20230131, end: 20230207
  2. TAFINLAR [Suspect]
     Active Substance: DABRAFENIB MESYLATE
     Dosage: 150 MG (0.5 DAY) (2X2)
     Route: 048
     Dates: start: 20230207, end: 20230224
  3. MEKINIST [Suspect]
     Active Substance: TRAMETINIB DIMETHYL SULFOXIDE
     Indication: Metastatic malignant melanoma
     Dosage: 2 MG, QD (1 TABLETT DAGLIGEN)
     Route: 048
     Dates: start: 20230131, end: 20230224

REACTIONS (8)
  - Rectal haemorrhage [Recovered/Resolved]
  - Pyrexia [Recovering/Resolving]
  - Renal failure [Recovering/Resolving]
  - Respiratory disorder [Recovering/Resolving]
  - Thrombocytopenia [Recovering/Resolving]
  - Coagulopathy [Recovering/Resolving]
  - Liver disorder [Recovering/Resolving]
  - Multiple organ dysfunction syndrome [Recovering/Resolving]

NARRATIVE: CASE EVENT DATE: 20230224
